FAERS Safety Report 8010443-5 (Version None)
Quarter: 2011Q4

REPORT INFORMATION
  Report Type: 
  Country: None (occurrence: None)
  Receive Date: 20111123
  Receipt Date: 20110817
  Transmission Date: 20120403
  Serious: No
  Sender: FDA-Public Use
  Company Number: 334020

PATIENT
  Age: 66 Year
  Sex: Male

DRUGS (4)
  1. VICTOZA [Suspect]
  2. VICTOZA [Suspect]
     Indication: TYPE 2 DIABETES MELLITUS
     Dosage: 1.6 MG, QD, SUBCUTANEOUS 1.2 MG, QD 1.8 MG, QD
     Route: 058
     Dates: start: 20110810
  3. VICTOZA [Suspect]
     Indication: TYPE 2 DIABETES MELLITUS
     Dosage: 1.6 MG, QD, SUBCUTANEOUS 1.2 MG, QD 1.8 MG, QD
     Route: 058
  4. VICTOZA [Suspect]

REACTIONS (3)
  - DECREASED APPETITE [None]
  - WEIGHT DECREASED [None]
  - NAUSEA [None]
